FAERS Safety Report 7233994-X (Version None)
Quarter: 2011Q1

REPORT INFORMATION
  Report Type: 
  Country: None (occurrence: None)
  Receive Date: 20110119
  Receipt Date: 20110106
  Transmission Date: 20110831
  Serious: Yes (Other)
  Sender: FDA-Public Use
  Company Number: US-GILEAD-2011-0035375

PATIENT
  Sex: Female

DRUGS (1)
  1. CAYSTON [Suspect]
     Indication: BURKHOLDERIA CEPACIA COMPLEX INFECTION
     Route: 055
     Dates: start: 20110101

REACTIONS (6)
  - DYSPNOEA [None]
  - DIARRHOEA [None]
  - EYE SWELLING [None]
  - NAUSEA [None]
  - VOMITING [None]
  - URTICARIA [None]
